FAERS Safety Report 24191585 (Version 4)
Quarter: 2024Q4

REPORT INFORMATION
  Report Type: Report from Study
  Country: US (occurrence: US)
  Receive Date: 20240808
  Receipt Date: 20241009
  Transmission Date: 20250115
  Serious: Yes (Other)
  Sender: TAKEDA
  Company Number: US-TAKEDA-2024TUS076579

PATIENT
  Age: 69 Year
  Sex: Male
  Weight: 196.4 kg

DRUGS (2)
  1. FRUQUINTINIB [Suspect]
     Active Substance: FRUQUINTINIB
     Indication: Colon cancer
     Dosage: 5 MILLIGRAM, QD
     Route: 048
     Dates: start: 20240615, end: 20240723
  2. FRUQUINTINIB [Suspect]
     Active Substance: FRUQUINTINIB
     Dosage: 5 MILLIGRAM
     Route: 048
     Dates: start: 20240615

REACTIONS (7)
  - Hepatic cancer [Unknown]
  - Lung neoplasm malignant [Unknown]
  - Pain [Unknown]
  - Blood potassium abnormal [Unknown]
  - Haemoglobin decreased [Unknown]
  - Dysphonia [Unknown]
  - Fatigue [Unknown]

NARRATIVE: CASE EVENT DATE: 20240901
